FAERS Safety Report 23739774 (Version 2)
Quarter: 2024Q2

REPORT INFORMATION
  Report Type: Spontaneous
  Country: US (occurrence: None)
  Receive Date: 20240414
  Receipt Date: 20240507
  Transmission Date: 20240716
  Serious: No
  Sender: FDA-Public Use
  Company Number: 2024A084777

PATIENT
  Sex: Female

DRUGS (1)
  1. BYDUREON BCISE [Suspect]
     Active Substance: EXENATIDE

REACTIONS (4)
  - Product dose omission issue [Unknown]
  - Wrong technique in device usage process [Unknown]
  - Injection site haemorrhage [Unknown]
  - Device mechanical issue [Unknown]
